FAERS Safety Report 11324933 (Version 1)
Quarter: 2015Q3

REPORT INFORMATION
  Report Type: Spontaneous
  Country: IL (occurrence: IL)
  Receive Date: 20150730
  Receipt Date: 20150730
  Transmission Date: 20151125
  Serious: Yes (Hospitalization)
  Sender: FDA-Public Use
  Company Number: IL-SHIRE-IL201508960

PATIENT
  Sex: Male

DRUGS (1)
  1. ELAPRASE [Suspect]
     Active Substance: IDURSULFASE
     Indication: PRODUCT USED FOR UNKNOWN INDICATION
     Dosage: 0.5 MG/KG, 1X/WEEK
     Route: 041

REACTIONS (4)
  - Ear disorder [Unknown]
  - Rhinorrhoea [Unknown]
  - Breath odour [Unknown]
  - Pyrexia [Unknown]

NARRATIVE: CASE EVENT DATE: 20150720
